FAERS Safety Report 9625542 (Version 3)
Quarter: 2013Q4

REPORT INFORMATION
  Report Type: Report from Study
  Country: US (occurrence: US)
  Receive Date: 20131016
  Receipt Date: 20131030
  Transmission Date: 20140711
  Serious: Yes (Other)
  Sender: FDA-Public Use
  Company Number: PHEH2013US020426

PATIENT
  Age: 67 Year
  Sex: Female

DRUGS (11)
  1. TOBI [Suspect]
     Indication: BRONCHIECTASIS
     Dosage: 300 MG, BID, 300MG/5ML AMPOULE VIA NEBULIZER
     Dates: start: 20130918
  2. TOBI [Suspect]
     Dosage: 300 MG, BID (1 AMPOULE TWICE DAILY, FOR 28 DAYS, THEN 14 DAYS OFF)
     Dates: end: 20130927
  3. CLINDAMYCIN HCL [Concomitant]
     Dosage: UNK UKN, UNK
  4. CENTRUM SILVER [Concomitant]
     Dosage: UNK UKN, UNK
  5. SYSTANE BALANCE [Concomitant]
     Dosage: UNK UKN, UNK
  6. ALLEGRA [Concomitant]
     Dosage: UNK UKN, UNK
  7. ADVAIR [Concomitant]
     Dosage: UNK UKN, UNK
  8. VITAMIN D3 [Concomitant]
     Dosage: 1000 U, UNK
  9. CALCIUM + MAGNESIUM + ZINC [Concomitant]
     Dosage: UNK UKN, UNK
  10. VITAMIN B [Concomitant]
     Dosage: UNK EQ, UNK
  11. OMEPRAZOLE [Concomitant]
     Dosage: UNK UKN, UNK

REACTIONS (4)
  - Escherichia infection [Unknown]
  - Malaise [Unknown]
  - Dysphonia [Unknown]
  - Oropharyngeal pain [Unknown]
